FAERS Safety Report 8619365-X (Version None)
Quarter: 2012Q3

REPORT INFORMATION
  Report Type: 
  Country: None (occurrence: None)
  Receive Date: 20120824
  Receipt Date: 20120816
  Transmission Date: 20120928
  Serious: Yes (Other)
  Sender: FDA-Public Use
  Company Number: US-US-EMD SERONO, INC.-7065758

PATIENT
  Sex: Female
  Weight: 77 kg

DRUGS (3)
  1. REBIF [Suspect]
     Indication: MULTIPLE SCLEROSIS
     Route: 058
     Dates: start: 20090526
  2. HORMONE REPLACEMENT THERAPY [Suspect]
     Indication: MENOPAUSE
     Dates: start: 19980101, end: 20110401
  3. HYPERTENSIVE MEDICATIONS [Concomitant]
     Indication: HYPERTENSION

REACTIONS (6)
  - BREAST CANCER IN SITU [None]
  - CHILLS [None]
  - CONSTIPATION [None]
  - HOT FLUSH [None]
  - PYREXIA [None]
  - HYPERPARATHYROIDISM [None]
